FAERS Safety Report 9060137 (Version 1)
Quarter: 2013Q1

REPORT INFORMATION
  Report Type: Spontaneous
  Country: FR (occurrence: FR)
  Receive Date: 20130212
  Receipt Date: 20130212
  Transmission Date: 20140127
  Serious: Yes (Death)
  Sender: FDA-Public Use
  Company Number: PHHY2013FR013377

PATIENT
  Age: 56 None
  Sex: Male

DRUGS (12)
  1. ABILIFY [Suspect]
     Indication: PSYCHOTIC DISORDER
     Dosage: 1 DF, UNK
     Route: 048
     Dates: start: 20080715
  2. TERCIAN [Suspect]
     Indication: PSYCHOTIC DISORDER
     Dosage: 2 DF, BID
     Route: 048
     Dates: start: 20080718
  3. XANAX [Suspect]
     Indication: PSYCHOTIC DISORDER
     Dosage: 1 DF, TID
     Dates: start: 20080718
  4. SOLIAN [Suspect]
     Indication: PSYCHOTIC DISORDER
     Dosage: 0.5 DF, QD
     Route: 048
     Dates: start: 20080621
  5. LEPTICUR [Suspect]
     Indication: PSYCHOTIC DISORDER
     Dosage: 1 DF, BID
     Route: 048
     Dates: start: 20080621
  6. ATARAX [Suspect]
     Indication: PSYCHOTIC DISORDER
     Dosage: 1 DF, QD
     Dates: start: 20080621
  7. LOXAPAC [Suspect]
     Indication: PSYCHOTIC DISORDER
     Dosage: 1 DF, TID
     Dates: start: 20080703
  8. EFFERALGAN [Concomitant]
     Dosage: 2 DF, TID
     Route: 048
     Dates: start: 20080622, end: 20080625
  9. KETOPROFEN [Concomitant]
     Dosage: UNK UKN, UNK
     Dates: start: 20080622, end: 20080626
  10. SPASFON LYOC [Concomitant]
     Dosage: 2 DF, TID
     Dates: start: 20080726
  11. VENTOLINE [Concomitant]
     Dosage: 2 DF, TID
     Dates: start: 20080629
  12. AMOXICILLIN + CLAVULANATE POTASSIUM [Suspect]
     Indication: PNEUMONIA ASPIRATION
     Dosage: 1 G, TID (1 G/ 125 MG)
     Route: 048
     Dates: start: 20080622, end: 20080630

REACTIONS (6)
  - Enterocolitis [Fatal]
  - Sepsis [Fatal]
  - Diarrhoea infectious [Fatal]
  - Renal failure acute [Fatal]
  - Leukocytosis [Fatal]
  - Death [Fatal]
